FAERS Safety Report 17283027 (Version 1)
Quarter: 2020Q1

REPORT INFORMATION
  Report Type: Spontaneous
  Country: PT (occurrence: PT)
  Receive Date: 20200117
  Receipt Date: 20200117
  Transmission Date: 20200409
  Serious: Yes (Other)
  Sender: FDA-Public Use
  Company Number: PT-MYLANLABS-2020M1003880

PATIENT
  Age: 52 Year
  Sex: Male

DRUGS (1)
  1. PRAVASTATIN. [Suspect]
     Active Substance: PRAVASTATIN
     Indication: PRODUCT USED FOR UNKNOWN INDICATION
     Dosage: 20 MG
     Route: 065

REACTIONS (8)
  - Hypercholesterolaemia [Recovering/Resolving]
  - Transaminases increased [Unknown]
  - Hyperuricaemia [Unknown]
  - Hyperferritinaemia [Recovering/Resolving]
  - Blood pressure increased [Unknown]
  - Hepatic steatosis [Unknown]
  - Hypertriglyceridaemia [Recovering/Resolving]
  - Blood glucose abnormal [Unknown]
